FAERS Safety Report 15196707 (Version 8)
Quarter: 2018Q3

REPORT INFORMATION
  Report Type: Spontaneous
  Country: US (occurrence: US)
  Receive Date: 20180725
  Receipt Date: 20180904
  Transmission Date: 20181010
  Serious: No
  Sender: FDA-Public Use
  Company Number: US-UNITED THERAPEUTICS-UNT-2018-010930

PATIENT
  Age: 60 Year
  Sex: Female
  Weight: 121.1 kg

DRUGS (6)
  1. REMODULIN [Suspect]
     Active Substance: TREPROSTINIL
     Indication: PULMONARY ARTERIAL HYPERTENSION
     Dosage: 0.012 ?G/KG, CONTINUING
     Route: 058
     Dates: start: 20180710
  2. REMODULIN [Suspect]
     Active Substance: TREPROSTINIL
     Dosage: 0.001 ?G/KG, CONTINUING
     Route: 058
  3. REMODULIN [Suspect]
     Active Substance: TREPROSTINIL
     Indication: PULMONARY HYPERTENSION
     Dosage: 0.010 ?G/KG, CONTINUING
     Route: 058
  4. REMODULIN [Suspect]
     Active Substance: TREPROSTINIL
     Dosage: 0.002 ?G/KG, CONTINUING
     Route: 058
  5. REMODULIN [Suspect]
     Active Substance: TREPROSTINIL
     Dosage: UNK
     Route: 058
     Dates: start: 20180726
  6. REMODULIN [Suspect]
     Active Substance: TREPROSTINIL
     Dosage: 0.014 ?G/KG, CONTINUING
     Route: 058

REACTIONS (52)
  - Pain in extremity [Unknown]
  - Blood thyroid stimulating hormone increased [Recovered/Resolved]
  - Therapy non-responder [Unknown]
  - Frustration tolerance decreased [Unknown]
  - Pain in jaw [Recovering/Resolving]
  - Erythema [Recovering/Resolving]
  - Dyspnoea [Recovering/Resolving]
  - Respiratory tract irritation [Unknown]
  - Arthralgia [Unknown]
  - Nausea [Not Recovered/Not Resolved]
  - Infusion site pain [Unknown]
  - Depressed mood [Unknown]
  - Ear pain [Not Recovered/Not Resolved]
  - Cough [Unknown]
  - Chest discomfort [Unknown]
  - Feeling abnormal [Unknown]
  - Irritability [Unknown]
  - Fluid retention [Unknown]
  - Malaise [Recovered/Resolved]
  - Muscle tightness [Unknown]
  - Orthostatic hypotension [Unknown]
  - Heart rate increased [Unknown]
  - Accidental underdose [Unknown]
  - Anxiety [Unknown]
  - Dehydration [Unknown]
  - Headache [Recovered/Resolved]
  - Flushing [Unknown]
  - Vomiting [Unknown]
  - Burning sensation [Not Recovered/Not Resolved]
  - Pain [Unknown]
  - Ascites [Unknown]
  - Weight decreased [Unknown]
  - Dizziness [Unknown]
  - Asthenia [Unknown]
  - Oxygen saturation decreased [Unknown]
  - Dyspnoea exertional [Unknown]
  - Dysstasia [Unknown]
  - Productive cough [Unknown]
  - Asthenia [Unknown]
  - Palpitations [Unknown]
  - Migraine [Recovered/Resolved]
  - Condition aggravated [Unknown]
  - Myalgia [Unknown]
  - Pain of skin [Unknown]
  - Toxicity to various agents [Unknown]
  - Decreased appetite [Unknown]
  - Diarrhoea [Recovering/Resolving]
  - Hypotension [Not Recovered/Not Resolved]
  - Back pain [Unknown]
  - Gait inability [Unknown]
  - Fatigue [Unknown]
  - Oral discomfort [Unknown]

NARRATIVE: CASE EVENT DATE: 2018
